FAERS Safety Report 6556754-1 (Version None)
Quarter: 2010Q1

REPORT INFORMATION
  Report Type: 
  Country: None (occurrence: None)
  Receive Date: 20100128
  Receipt Date: 20100119
  Transmission Date: 20100710
  Serious: Yes (Hospitalization, Other)
  Sender: FDA-Public Use
  Company Number: US-WYE-H10652209

PATIENT
  Sex: Male
  Weight: 80.81 kg

DRUGS (7)
  1. PRISTIQ [Suspect]
     Indication: DEPRESSION
     Route: 048
     Dates: start: 20090501, end: 20090101
  2. PRISTIQ [Suspect]
     Indication: ANXIETY
     Dosage: TAPERED TO 50 MG EVERY THIRD DAY
     Route: 048
     Dates: start: 20090101, end: 20090101
  3. PRISTIQ [Suspect]
     Dosage: INCREASED TO EVERY OTHER DAY AND SOMETIMES DAILY
     Route: 048
     Dates: start: 20090101
  4. LIDOCAINE [Suspect]
     Dosage: UNKNOWN
     Dates: start: 20090715, end: 20090715
  5. AVAPRO [Concomitant]
     Indication: HYPERTENSION
  6. PREDNISONE [Concomitant]
     Indication: TEMPORAL ARTERITIS
     Dates: start: 20070901
  7. METOPROLOL [Concomitant]
     Indication: HYPERTENSION

REACTIONS (20)
  - CONDITION AGGRAVATED [None]
  - CONSTIPATION [None]
  - DECREASED APPETITE [None]
  - DIZZINESS [None]
  - DRUG DEPENDENCE [None]
  - DRUG WITHDRAWAL SYNDROME [None]
  - FATIGUE [None]
  - GAIT DISTURBANCE [None]
  - INSOMNIA [None]
  - INTENTIONAL DRUG MISUSE [None]
  - LIBIDO INCREASED [None]
  - MALE SEXUAL DYSFUNCTION [None]
  - MOVEMENT DISORDER [None]
  - NAUSEA [None]
  - NIGHTMARE [None]
  - PAIN IN EXTREMITY [None]
  - RESTLESSNESS [None]
  - SOMNOLENCE [None]
  - SYNCOPE [None]
  - URINARY HESITATION [None]
